FAERS Safety Report 6825925-9 (Version None)
Quarter: 2010Q3

REPORT INFORMATION
  Report Type: 
  Country: None (occurrence: None)
  Receive Date: 20100709
  Receipt Date: 20100629
  Transmission Date: 20110219
  Serious: No
  Sender: FDA-Public Use
  Company Number: US-JNJFOC-20100503527

PATIENT
  Sex: Female
  Weight: 81.65 kg

DRUGS (4)
  1. DURAGESIC-100 [Suspect]
     Indication: BACK PAIN
     Route: 062
  2. FENTANYL [Suspect]
     Indication: BACK PAIN
     Route: 062
  3. FENTANYL [Suspect]
     Dosage: NDC 0781-7244-55
     Route: 062
  4. UNKNOWN MEDICATION [Concomitant]
     Indication: PRE-EXISTING DISEASE
     Route: 065

REACTIONS (3)
  - APPLICATION SITE ERYTHEMA [None]
  - APPLICATION SITE IRRITATION [None]
  - WRONG TECHNIQUE IN DRUG USAGE PROCESS [None]
